FAERS Safety Report 6380741-X (Version None)
Quarter: 2009Q3

REPORT INFORMATION
  Report Type: 
  Country: None (occurrence: None)
  Receive Date: 20090929
  Receipt Date: 20090917
  Transmission Date: 20100115
  Serious: Yes (Hospitalization, Other)
  Sender: FDA-Public Use
  Company Number: US-PFIZER INC-2009272053

PATIENT
  Sex: Female
  Weight: 83.9 kg

DRUGS (5)
  1. SPIRONOLACTONE [Suspect]
     Indication: ADRENAL DISORDER
     Dosage: 50 MG, 2X/DAY
     Route: 048
     Dates: start: 20040101
  2. SPIRONOLACTONE [Suspect]
     Indication: BLOOD TESTOSTERONE INCREASED
  3. LEVOXYL [Concomitant]
     Indication: HYPOTHYROIDISM
     Dosage: UNK
  4. TOPAMAX [Concomitant]
     Dosage: UNK
  5. YASMIN [Concomitant]
     Dosage: UNK

REACTIONS (3)
  - COELIAC DISEASE [None]
  - CONDITION AGGRAVATED [None]
  - THYROID FUNCTION TEST ABNORMAL [None]
